FAERS Safety Report 13891346 (Version 2)
Quarter: 2017Q3

REPORT INFORMATION
  Report Type: Spontaneous
  Country: US (occurrence: US)
  Receive Date: 20170822
  Receipt Date: 20170824
  Transmission Date: 20171127
  Serious: No
  Sender: FDA-Public Use
  Company Number: US-PFIZER INC-2017357208

PATIENT
  Age: 50 Year
  Sex: Male

DRUGS (1)
  1. SUTENT [Suspect]
     Active Substance: SUNITINIB MALATE
     Indication: NASOPHARYNGEAL CANCER
     Dosage: 25 MG, CYCLIC (2 WEEKS ON/1 WEEK OFF)

REACTIONS (2)
  - Product use in unapproved indication [Unknown]
  - Irregular sleep wake rhythm disorder [Unknown]
